FAERS Safety Report 8368293-6 (Version None)
Quarter: 2012Q2

REPORT INFORMATION
  Report Type: 
  Country: None (occurrence: None)
  Receive Date: 20120517
  Receipt Date: 20120511
  Transmission Date: 20120825
  Serious: Yes (Hospitalization)
  Sender: FDA-Public Use
  Company Number: FR-BAXTER-2012BAX005290

PATIENT
  Sex: Male

DRUGS (4)
  1. ONCOVIN [Suspect]
     Indication: LYMPHOMA
     Route: 042
     Dates: start: 20101012, end: 20110201
  2. ADRIAMYCIN PFS [Suspect]
     Indication: LYMPHOMA
     Route: 042
     Dates: start: 20101012, end: 20110201
  3. CYCLOPHOSPHAMIDE [Suspect]
     Indication: LYMPHOMA
     Route: 042
     Dates: start: 20101012, end: 20110201
  4. MABTHERA [Suspect]
     Indication: LYMPHOMA
     Route: 042
     Dates: start: 20101012, end: 20110315

REACTIONS (1)
  - CARDIOMYOPATHY [None]
